APPROVED DRUG PRODUCT: RYKINDO
Active Ingredient: RISPERIDONE
Strength: 50MG
Dosage Form/Route: FOR SUSPENSION, EXTENDED RELEASE;INTRAMUSCULAR
Application: N212849 | Product #004
Applicant: SHANDONG LUYE PHARMACEUTICAL CO LTD
Approved: Jan 13, 2023 | RLD: Yes | RS: No | Type: RX

PATENTS:
Patent 10406161 | Expires: Apr 10, 2032
Patent 10098882 | Expires: Apr 10, 2032
Patent 9532991 | Expires: Apr 10, 2032
Patent 9446135 | Expires: Apr 10, 2032
Patent 11110094 | Expires: Apr 10, 2032